FAERS Safety Report 18762039 (Version 2)
Quarter: 2022Q1

REPORT INFORMATION
  Report Type: Spontaneous
  Country: US (occurrence: US)
  Receive Date: 20210120
  Receipt Date: 20220316
  Transmission Date: 20220423
  Serious: Yes (Other)
  Sender: FDA-Public Use
  Company Number: US-GLAXOSMITHKLINE-US2021GSK000979

PATIENT
  Sex: Female

DRUGS (20)
  1. ZANTAC [Suspect]
     Active Substance: RANITIDINE HYDROCHLORIDE
     Indication: Dyspepsia
     Dosage: 150 MG PRESCRIPTION
     Route: 065
     Dates: start: 200601, end: 201804
  2. ZANTAC [Suspect]
     Active Substance: RANITIDINE HYDROCHLORIDE
     Indication: Hyperchlorhydria
     Dosage: 300 MG PRESCRIPTION
     Route: 065
     Dates: start: 200601, end: 201804
  3. ZANTAC [Suspect]
     Active Substance: RANITIDINE HYDROCHLORIDE
     Indication: Gastric ulcer
     Dosage: {NULL}|PRESCRIPTION
     Route: 065
     Dates: start: 200601, end: 201804
  4. ZANTAC [Suspect]
     Active Substance: RANITIDINE HYDROCHLORIDE
     Indication: Erosive oesophagitis
     Dosage: UNK, QD
     Route: 065
     Dates: start: 200601, end: 201804
  5. ZANTAC [Suspect]
     Active Substance: RANITIDINE HYDROCHLORIDE
     Indication: Gastrooesophageal reflux disease
  6. ZANTAC [Suspect]
     Active Substance: RANITIDINE HYDROCHLORIDE
     Indication: Dyspepsia
     Dosage: 150 MG PRESCRIPTION
     Route: 065
     Dates: start: 200601, end: 201804
  7. ZANTAC [Suspect]
     Active Substance: RANITIDINE HYDROCHLORIDE
     Indication: Hyperchlorhydria
     Dosage: 300 MG PRESCRIPTION
     Route: 065
     Dates: start: 200601, end: 201804
  8. ZANTAC [Suspect]
     Active Substance: RANITIDINE HYDROCHLORIDE
     Indication: Gastric ulcer
     Dosage: {NULL}|PRESCRIPTION
     Route: 065
     Dates: start: 200601, end: 201804
  9. ZANTAC [Suspect]
     Active Substance: RANITIDINE HYDROCHLORIDE
     Indication: Erosive oesophagitis
     Dosage: UNK, QD
     Route: 065
     Dates: start: 200601, end: 201804
  10. ZANTAC [Suspect]
     Active Substance: RANITIDINE HYDROCHLORIDE
     Indication: Gastrooesophageal reflux disease
  11. RANITIDINE [Suspect]
     Active Substance: RANITIDINE
     Indication: Dyspepsia
     Dosage: 150 MG PRESCRIPTION
     Route: 065
     Dates: start: 200601, end: 201804
  12. RANITIDINE [Suspect]
     Active Substance: RANITIDINE
     Indication: Hyperchlorhydria
     Dosage: 300 MG
     Route: 065
     Dates: start: 200601, end: 201804
  13. RANITIDINE [Suspect]
     Active Substance: RANITIDINE
     Indication: Gastric ulcer
     Dosage: {NULL}|PRESCRIPTION
     Route: 065
     Dates: start: 200601, end: 201804
  14. RANITIDINE [Suspect]
     Active Substance: RANITIDINE
     Indication: Erosive oesophagitis
     Dosage: {NULL}|PRESCRIPTION
     Route: 065
     Dates: start: 200601, end: 201804
  15. RANITIDINE [Suspect]
     Active Substance: RANITIDINE
     Indication: Gastrooesophageal reflux disease
  16. RANITIDINE [Suspect]
     Active Substance: RANITIDINE
     Indication: Dyspepsia
     Dosage: 150 MG PRESCRIPTION
     Route: 065
     Dates: start: 200601, end: 201804
  17. RANITIDINE [Suspect]
     Active Substance: RANITIDINE
     Indication: Hyperchlorhydria
     Dosage: 300 MG
     Route: 065
     Dates: start: 200601, end: 201804
  18. RANITIDINE [Suspect]
     Active Substance: RANITIDINE
     Indication: Gastric ulcer
     Dosage: {NULL}|PRESCRIPTION
     Route: 065
     Dates: start: 200601, end: 201804
  19. RANITIDINE [Suspect]
     Active Substance: RANITIDINE
     Indication: Erosive oesophagitis
     Dosage: {NULL}|PRESCRIPTION
     Route: 065
     Dates: start: 200601, end: 201804
  20. RANITIDINE [Suspect]
     Active Substance: RANITIDINE
     Indication: Gastrooesophageal reflux disease

REACTIONS (2)
  - Uterine cancer [Unknown]
  - Skin cancer [Unknown]
